FAERS Safety Report 8110758-6 (Version None)
Quarter: 2012Q1

REPORT INFORMATION
  Report Type: 
  Country: None (occurrence: None)
  Receive Date: 20120203
  Receipt Date: 20111201
  Transmission Date: 20120608
  Serious: No
  Sender: FDA-Public Use
  Company Number: US-GLAXOSMITHKLINE-A0956222A

PATIENT
  Age: 29 Year
  Sex: Female

DRUGS (4)
  1. HORIZANT [Suspect]
     Indication: ANXIETY
     Dosage: 300MG AT NIGHT
     Route: 048
     Dates: start: 20111001
  2. CYMBALTA [Concomitant]
  3. PROVIGIL [Concomitant]
  4. PSYCHOTROPIC DRUGS [Concomitant]

REACTIONS (1)
  - DRUG ADMINISTRATION ERROR [None]
